FAERS Safety Report 21169180 (Version 1)
Quarter: 2022Q3

REPORT INFORMATION
  Report Type: Report from Study
  Country: DE (occurrence: DE)
  Receive Date: 20220804
  Receipt Date: 20220804
  Transmission Date: 20221027
  Serious: Yes (Hospitalization)
  Sender: FDA-Public Use
  Company Number: DE-EXELIXIS-XL18419019032

PATIENT
  Age: 60 Year
  Sex: Male
  Weight: 89.7 kg

DRUGS (18)
  1. CABOZANTINIB [Suspect]
     Active Substance: CABOZANTINIB
     Indication: Renal cell carcinoma
     Dosage: 60 MG, QD
     Route: 048
     Dates: start: 20181015
  2. CABOZANTINIB [Suspect]
     Active Substance: CABOZANTINIB
     Dosage: 40 MG
     Dates: end: 20190530
  3. BETAISODONA [Concomitant]
     Active Substance: POVIDONE-IODINE
  4. BEPANTHEN [Concomitant]
  5. METAMIZOLE [Concomitant]
     Active Substance: METAMIZOLE
  6. XGEVA [Concomitant]
     Active Substance: DENOSUMAB
  7. Calcigen [Concomitant]
  8. GELEE ROYALE [Concomitant]
  9. LOPERAMIDE [Concomitant]
     Active Substance: LOPERAMIDE
  10. Eubiol [Concomitant]
  11. ESCHERICHIA COLI [Concomitant]
     Active Substance: ESCHERICHIA COLI
  12. CALCIUM BIOTIN D3 [Concomitant]
  13. RAMIPRIL [Concomitant]
     Active Substance: RAMIPRIL
  14. PANTOZOL [Concomitant]
     Active Substance: PANTOPRAZOLE SODIUM
  15. IBUPROFEN [Concomitant]
     Active Substance: IBUPROFEN
  16. BUTYLSCOPOLAMINE BROMIDE [Concomitant]
     Active Substance: BUTYLSCOPOLAMINE BROMIDE
  17. ARCOXIA [Concomitant]
     Active Substance: ETORICOXIB
  18. LYRICA [Concomitant]
     Active Substance: PREGABALIN

REACTIONS (7)
  - Leg amputation [Not Recovered/Not Resolved]
  - Flatulence [Not Recovered/Not Resolved]
  - Noninfective gingivitis [Recovered/Resolved]
  - Abdominal pain upper [Recovering/Resolving]
  - Pain in extremity [Recovered/Resolved with Sequelae]
  - Diarrhoea [Not Recovered/Not Resolved]
  - Dysphonia [Not Recovered/Not Resolved]

NARRATIVE: CASE EVENT DATE: 20181115
